FAERS Safety Report 7974596-7 (Version None)
Quarter: 2011Q4

REPORT INFORMATION
  Report Type: 
  Country: None (occurrence: None)
  Receive Date: 20111213
  Receipt Date: 20111206
  Transmission Date: 20120403
  Serious: Yes (Death, Hospitalization)
  Sender: FDA-Public Use
  Company Number: US-ABBOTT-11P-163-0731582-00

PATIENT
  Sex: Male
  Weight: 109.69 kg

DRUGS (21)
  1. ACTOS [Concomitant]
     Indication: PRODUCT USED FOR UNKNOWN INDICATION
     Dosage: IN THE MORNING WITH BREAKFAST
     Route: 048
  2. SYNTHROID [Suspect]
     Indication: HYPOTHYROIDISM
     Route: 048
     Dates: start: 20110101
  3. SYNTHROID [Suspect]
  4. SYNTHROID [Concomitant]
     Indication: PRODUCT USED FOR UNKNOWN INDICATION
     Dosage: ONCE DAILY WITH SYNTHROID 0.025 MG
     Route: 048
  5. NEURONTIN [Concomitant]
     Indication: PRODUCT USED FOR UNKNOWN INDICATION
     Route: 048
  6. CELEBREX [Concomitant]
     Indication: PRODUCT USED FOR UNKNOWN INDICATION
     Dosage: 1 IN 1 D, MAY BE MIXED WITH SOFT FOOD
     Route: 048
  7. TRICOR [Concomitant]
     Indication: PRODUCT USED FOR UNKNOWN INDICATION
     Route: 048
  8. LANTUS [Concomitant]
     Indication: PRODUCT USED FOR UNKNOWN INDICATION
     Dosage: 100 UNITS/ML, ONCE A DAY AT BEDTIME
     Route: 058
  9. AMARYL [Concomitant]
     Indication: PRODUCT USED FOR UNKNOWN INDICATION
     Dosage: TWO TIMES A DAY WITH MEALS
     Route: 048
  10. TRICOR [Suspect]
     Indication: HYPERLIPIDAEMIA
     Route: 048
  11. JANUMET [Concomitant]
     Indication: PRODUCT USED FOR UNKNOWN INDICATION
     Dosage: 1000MG-50MG TWICE DAILY WITH MEALS
     Route: 048
  12. SYNTHROID [Concomitant]
     Dosage: ONCE DAILY WITH SYNTHROID 0.2 MG
     Route: 048
  13. SOMA [Concomitant]
     Indication: NECK PAIN
     Dosage: THREE TIMES A DAY AS NEEDED
     Route: 048
  14. ZOLOFT [Concomitant]
     Indication: PRODUCT USED FOR UNKNOWN INDICATION
     Route: 048
  15. BUSPAR [Concomitant]
     Indication: PRODUCT USED FOR UNKNOWN INDICATION
     Route: 048
  16. TRIAMCINOLONE [Concomitant]
     Indication: PRODUCT USED FOR UNKNOWN INDICATION
  17. IMITREX [Concomitant]
     Indication: MIGRAINE
     Dosage: AS NEEDED, MAY REPEAT DOSE ONCE IN 2 HRS
     Route: 048
  18. HUMULIN R [Concomitant]
     Indication: PRODUCT USED FOR UNKNOWN INDICATION
     Dosage: 70/30, 2 IN 1 D, BEFORE BREAKFAST/DINNER
     Route: 058
  19. ASPIRIN [Concomitant]
     Indication: PRODUCT USED FOR UNKNOWN INDICATION
     Dosage: ONCE A DAY WITH FOOD
     Route: 048
  20. SYNTHROID [Suspect]
  21. LIPITOR [Concomitant]
     Indication: PRODUCT USED FOR UNKNOWN INDICATION
     Dosage: IN THE EVENING WITH MEAL
     Route: 048

REACTIONS (5)
  - CHRONIC OBSTRUCTIVE PULMONARY DISEASE [None]
  - DIABETES MELLITUS [None]
  - ANAEMIA [None]
  - PNEUMONIA [None]
  - RESPIRATORY FAILURE [None]
